FAERS Safety Report 4503011-0 (Version None)
Quarter: 2004Q4

REPORT INFORMATION
  Report Type: 
  Country: None (occurrence: None)
  Receive Date: 20041112
  Receipt Date: 20041102
  Transmission Date: 20050328
  Serious: Yes (Disabling, Other)
  Sender: FDA-Public Use
  Company Number: 2004-11-0078

PATIENT
  Age: 50 Year
  Sex: Female

DRUGS (1)
  1. INTRON A [Suspect]
     Indication: ESSENTIAL THROMBOCYTHAEMIA
     Dosage: 4.5 MIU QD

REACTIONS (7)
  - BIOPSY MUSCLE ABNORMAL [None]
  - DIFFICULTY IN WALKING [None]
  - ELECTROMYOGRAM ABNORMAL [None]
  - FATIGUE [None]
  - MUSCLE ATROPHY [None]
  - MUSCULAR WEAKNESS [None]
  - MYOPATHY [None]
